FAERS Safety Report 25609089 (Version 1)
Quarter: 2025Q3

REPORT INFORMATION
  Report Type: Spontaneous
  Country: US (occurrence: US)
  Receive Date: 20250726
  Receipt Date: 20250726
  Transmission Date: 20251021
  Serious: No
  Sender: AUROBINDO
  Company Number: US-AUROBINDO-AUR-APL-2025-035078

PATIENT
  Age: 53 Year
  Sex: Female
  Weight: 52.16 kg

DRUGS (1)
  1. CEVIMELINE HYDROCHLORIDE [Suspect]
     Active Substance: CEVIMELINE HYDROCHLORIDE
     Indication: Sjogren^s syndrome
     Dosage: 30 MILLIGRAM, 3 TIMES A DAY
     Route: 048
     Dates: start: 20250628

REACTIONS (2)
  - Feeling abnormal [Unknown]
  - Drug ineffective [Unknown]
